FAERS Safety Report 7688214-9 (Version None)
Quarter: 2011Q3

REPORT INFORMATION
  Report Type: 
  Country: None (occurrence: None)
  Receive Date: 20110817
  Receipt Date: 20110620
  Transmission Date: 20111222
  Serious: No
  Sender: FDA-Public Use
  Company Number: US-GLAXOSMITHKLINE-A0932042A

PATIENT
  Sex: Female

DRUGS (11)
  1. AMITRIPTYLINE HCL [Concomitant]
  2. TRIAMTERENE AND HYDROCHLOROTHIAZIDE [Concomitant]
  3. AMBIEN [Concomitant]
  4. OMEPRAZOLE [Concomitant]
  5. EFFEXOR [Concomitant]
  6. LOVASTATIN [Concomitant]
  7. SYNTHROID [Concomitant]
  8. FIORICET [Concomitant]
  9. COMPAZINE [Concomitant]
  10. NEURONTIN [Concomitant]
  11. VOTRIENT [Suspect]
     Indication: RENAL CELL CARCINOMA
     Dosage: 400MG PER DAY
     Route: 048
     Dates: start: 20090901, end: 20110601

REACTIONS (1)
  - EJECTION FRACTION DECREASED [None]
